FAERS Safety Report 10031699 (Version 1)
Quarter: 2014Q1

REPORT INFORMATION
  Report Type: Spontaneous
  Country: US (occurrence: US)
  Receive Date: 20140324
  Receipt Date: 20140324
  Transmission Date: 20141002
  Serious: No
  Sender: FDA-Public Use
  Company Number: US-PFIZER INC-2014083344

PATIENT
  Age: 58 Year
  Sex: Female
  Weight: 106 kg

DRUGS (2)
  1. CHANTIX [Suspect]
     Indication: SMOKING CESSATION THERAPY
     Dosage: UNK
  2. METFORMIN [Concomitant]
     Indication: DIABETES MELLITUS
     Dosage: UNK.3X/DAY

REACTIONS (1)
  - Drug ineffective [Unknown]
